FAERS Safety Report 7972081-X (Version None)
Quarter: 2011Q4

REPORT INFORMATION
  Report Type: 
  Country: None (occurrence: None)
  Receive Date: 20111212
  Receipt Date: 20111209
  Transmission Date: 20120403
  Serious: No
  Sender: FDA-Public Use
  Company Number: US-PFIZER INC-2011301180

PATIENT
  Sex: Female
  Weight: 90.2 kg

DRUGS (1)
  1. PREMARIN [Suspect]
     Indication: MENOPAUSE
     Dosage: 2 MG, 2X/WEEK
     Route: 067
     Dates: end: 20111207

REACTIONS (1)
  - FUNGAL INFECTION [None]
